FAERS Safety Report 8819482 (Version 1)
Quarter: 2012Q4

REPORT INFORMATION
  Report Type: 
  Country: NL (occurrence: NL)
  Receive Date: 20121001
  Receipt Date: 20121001
  Transmission Date: 20130627
  Serious: Yes (Life-Threatening, Hospitalization)
  Sender: FDA-Public Use
  Company Number: NL-AMGEN-NLDSP2012060499

PATIENT
  Age: 42 Year
  Sex: Female

DRUGS (4)
  1. ENBREL [Suspect]
     Indication: RHEUMATOID ARTHRITIS
     Dosage: 50 mg, weekly
     Dates: start: 20101215
  2. PREDNISON [Concomitant]
     Dosage: UNK
  3. METOPROLOL [Concomitant]
     Dosage: UNK
  4. ATORVASTATIN [Concomitant]
     Dosage: UNK

REACTIONS (2)
  - Myocardial infarction [Recovering/Resolving]
  - Cardiac arrest [Recovering/Resolving]
